FAERS Safety Report 13738461 (Version 1)
Quarter: 2017Q3

REPORT INFORMATION
  Report Type: Spontaneous
  Country: US (occurrence: US)
  Receive Date: 20170710
  Receipt Date: 20170710
  Transmission Date: 20171127
  Serious: Yes (Other)
  Sender: FDA-Public Use
  Company Number: US-SAOL THERAPEUTICS-2016SAO01250

PATIENT
  Age: 42 Year
  Sex: Male

DRUGS (4)
  1. BACLOFEN. [Suspect]
     Active Substance: BACLOFEN
     Indication: DIABETIC NEUROPATHY
     Dosage: 4 MG, \DAY
  2. BACLOFEN. [Suspect]
     Active Substance: BACLOFEN
     Indication: DIABETIC NEUROPATHY
  3. DILAUDID [Suspect]
     Active Substance: HYDROMORPHONE HYDROCHLORIDE
     Dosage: 7.010 ?G, \DAY
     Route: 037
  4. BACLOFEN. [Suspect]
     Active Substance: BACLOFEN
     Indication: PANCREATITIS
     Dosage: 7.010 ?G, \DAY
     Route: 037

REACTIONS (10)
  - Lacrimation increased [Unknown]
  - Drug withdrawal syndrome [Unknown]
  - Piloerection [Unknown]
  - Chills [Unknown]
  - Device failure [Recovered/Resolved]
  - Device occlusion [Recovered/Resolved]
  - Off label use [Unknown]
  - Malaise [Unknown]
  - Hyperhidrosis [Unknown]
  - Pain [Unknown]

NARRATIVE: CASE EVENT DATE: 20161212
